FAERS Safety Report 24982903 (Version 4)
Quarter: 2025Q3

REPORT INFORMATION
  Report Type: Report from Study
  Country: CA (occurrence: CA)
  Receive Date: 20250218
  Receipt Date: 20250803
  Transmission Date: 20251021
  Serious: Yes (Hospitalization)
  Sender: ABBVIE
  Company Number: US-ABBVIE-6138951

PATIENT
  Age: 50 Year
  Sex: Female
  Weight: 64.864 kg

DRUGS (7)
  1. CARIPRAZINE [Suspect]
     Active Substance: CARIPRAZINE
     Indication: Bipolar I disorder
     Route: 048
     Dates: start: 20240924
  2. CLOZARIL [Concomitant]
     Active Substance: CLOZAPINE
     Indication: Bipolar I disorder
     Route: 048
     Dates: start: 20241203
  3. CLOZARIL [Concomitant]
     Active Substance: CLOZAPINE
     Indication: Bipolar I disorder
     Dosage: AT BEDTIME
     Route: 048
     Dates: end: 20241202
  4. METFORMIN [Concomitant]
     Active Substance: METFORMIN HYDROCHLORIDE
     Indication: Diabetes mellitus
     Route: 048
     Dates: end: 20250226
  5. FERROUS FUMARATE [Concomitant]
     Active Substance: FERROUS FUMARATE
     Indication: Mineral supplementation
     Dosage: FREQUENCY: EVERY OTHER DAY
     Route: 048
     Dates: start: 20241202
  6. VITAMIN D3 [Concomitant]
     Active Substance: CHOLECALCIFEROL
     Indication: Vitamin supplementation
     Route: 048
     Dates: start: 20241202
  7. LITHIUM [Concomitant]
     Active Substance: LITHIUM
     Indication: Bipolar I disorder
     Dosage: AT BEDTIME
     Route: 048
     Dates: end: 20241202

REACTIONS (1)
  - Antipsychotic drug level increased [Recovered/Resolved]

NARRATIVE: CASE EVENT DATE: 20241202
